FAERS Safety Report 9246650 (Version 1)
Quarter: 2013Q2

REPORT INFORMATION
  Report Type: Spontaneous
  Country: US (occurrence: US)
  Receive Date: 20130422
  Receipt Date: 20130422
  Transmission Date: 20140414
  Serious: No
  Sender: FDA-Public Use
  Company Number: US-TEVA-399296USA

PATIENT
  Age: 75 Year
  Sex: Female
  Weight: 66.28 kg

DRUGS (3)
  1. PROAIR HFA [Suspect]
     Indication: PROPHYLAXIS AGAINST BRONCHOSPASM
  2. PREMARIN [Concomitant]
     Dosage: 0.625 MG 1/2 TAB PER DAY
  3. ARMOUR THYROID [Concomitant]
     Indication: THYROID DISORDER

REACTIONS (3)
  - Anosmia [Not Recovered/Not Resolved]
  - Dry mouth [Not Recovered/Not Resolved]
  - Feeling abnormal [Not Recovered/Not Resolved]
